FAERS Safety Report 6773508-1 (Version None)
Quarter: 2010Q2

REPORT INFORMATION
  Report Type: 
  Country: None (occurrence: None)
  Receive Date: 20100616
  Receipt Date: 20100602
  Transmission Date: 20101027
  Serious: No
  Sender: FDA-Public Use
  Company Number: US-ABBOTT-10P-163-0649386-00

PATIENT
  Sex: Female

DRUGS (3)
  1. TRILIPIX [Suspect]
     Indication: MIXED HYPERLIPIDAEMIA
     Dates: start: 20091001, end: 20100501
  2. CRESTOR [Suspect]
     Indication: MIXED HYPERLIPIDAEMIA
     Dates: end: 20100501
  3. WELCHOL [Concomitant]
     Indication: MIXED HYPERLIPIDAEMIA

REACTIONS (1)
  - LIVER FUNCTION TEST ABNORMAL [None]
